FAERS Safety Report 8880042 (Version 2)
Quarter: 2012Q4

REPORT INFORMATION
  Report Type: 
  Country: JP (occurrence: JP)
  Receive Date: 20121101
  Receipt Date: 20121226
  Transmission Date: 20130627
  Serious: Yes (Life-Threatening, Hospitalization, Other)
  Sender: FDA-Public Use
  Company Number: JP-AMGEN-JPNSP2012069197

PATIENT
  Age: 72 Year
  Sex: Female
  Weight: 48 kg

DRUGS (9)
  1. VECTIBIX [Suspect]
     Indication: COLON CANCER
     Dosage: 250 mg, q2wk
     Route: 042
     Dates: start: 20120509, end: 20120704
  2. ELPLAT [Suspect]
     Indication: COLON CANCER
     Dosage: 110 mg, q2wk
     Route: 042
     Dates: start: 20120425, end: 20120425
  3. ELPLAT [Suspect]
     Dosage: 106 mg, q2wk
     Route: 042
     Dates: start: 20120509
  4. ELPLAT [Suspect]
     Dosage: 100 mg, q2wk
     Route: 042
     Dates: end: 20120704
  5. 5-FU [Suspect]
     Indication: COLON CANCER
     Dosage: 3620 mg, q2wk
     Route: 042
     Dates: start: 20120425, end: 20120425
  6. 5-FU [Suspect]
     Dosage: 3500 mg, q2wk
     Route: 042
     Dates: start: 20120509, end: 20120704
  7. ISOVORIN [Suspect]
     Indication: COLON CANCER
     Dosage: 250 mg, q2wk
     Route: 042
     Dates: start: 20120509, end: 20120704
  8. DECADRON [Concomitant]
     Dosage: 6.6 mg, q2wk
     Route: 042
     Dates: start: 20120509, end: 20120704
  9. KYTRIL [Concomitant]
     Dosage: 3 mg, q2wk
     Route: 042
     Dates: start: 20120509, end: 20120704

REACTIONS (5)
  - Septic shock [Recovering/Resolving]
  - Pseudomonas infection [Recovered/Resolved]
  - Renal impairment [Recovering/Resolving]
  - White blood cell count decreased [Unknown]
  - Dermatitis acneiform [Not Recovered/Not Resolved]
